FAERS Safety Report 4264991-4 (Version None)
Quarter: 2004Q1

REPORT INFORMATION
  Report Type: 
  Country: None (occurrence: None)
  Receive Date: 20040106
  Receipt Date: 20040105
  Transmission Date: 20041129
  Serious: Yes (Other)
  Sender: FDA-Public Use
  Company Number: WAES 0401CHE00002

PATIENT
  Age: 55 Year
  Sex: Male

DRUGS (6)
  1. ASPIRIN [Concomitant]
     Indication: MYOCARDIAL INFARCTION
     Route: 048
     Dates: start: 19990101
  2. ATORVASTATIN CALCIUM [Concomitant]
     Indication: MYOCARDIAL INFARCTION
     Route: 048
     Dates: start: 19990101
  3. DIGOXIN [Concomitant]
     Indication: MYOCARDIAL INFARCTION
     Route: 048
     Dates: start: 19990101
  4. COZAAR [Suspect]
     Indication: MYOCARDIAL INFARCTION
     Route: 048
     Dates: start: 19990101
  5. NICORANDIL [Suspect]
     Indication: MYOCARDIAL INFARCTION
     Route: 048
     Dates: start: 20030401, end: 20030818
  6. SPIRONOLACTONE [Concomitant]
     Indication: MYOCARDIAL INFARCTION
     Route: 048
     Dates: start: 19990101

REACTIONS (1)
  - CLUSTER HEADACHE [None]
